FAERS Safety Report 6644066-7 (Version None)
Quarter: 2010Q1

REPORT INFORMATION
  Report Type: 
  Country: None (occurrence: None)
  Receive Date: 20100322
  Receipt Date: 20100307
  Transmission Date: 20100710
  Serious: Yes (Hospitalization)
  Sender: FDA-Public Use
  Company Number: PHHY2010DE00956

PATIENT
  Sex: Male
  Weight: 112 kg

DRUGS (2)
  1. ALISKIREN ALI+ [Suspect]
     Indication: HYPERTENSION
     Dosage: 300 MG PER DAY
     Route: 048
     Dates: start: 20090309
  2. LENDORMIN [Concomitant]
     Indication: SLEEP DISORDER
     Dosage: 0.25 MG, PER DAY
     Route: 048
     Dates: start: 20090624

REACTIONS (2)
  - INGUINAL HERNIA [None]
  - SURGERY [None]
